FAERS Safety Report 6190797-5 (Version None)
Quarter: 2009Q2

REPORT INFORMATION
  Report Type: 
  Country: None (occurrence: None)
  Receive Date: 20090513
  Receipt Date: 20090513
  Transmission Date: 20091009
  Serious: Yes (Other)
  Sender: FDA-Public Use
  Company Number: None

PATIENT
  Age: 13 Year
  Sex: Male
  Weight: 58.0604 kg

DRUGS (1)
  1. LEVAQUIN [Suspect]
     Indication: CHRONIC SINUSITIS
     Dosage: 1 PILL ONCE DAILY PO
     Route: 048
     Dates: start: 20090506, end: 20090511

REACTIONS (4)
  - GAIT DISTURBANCE [None]
  - SWELLING [None]
  - TENDON DISORDER [None]
  - TENDON PAIN [None]
